FAERS Safety Report 6531209-9 (Version None)
Quarter: 2010Q1

REPORT INFORMATION
  Report Type: 
  Country: None (occurrence: None)
  Receive Date: 20100108
  Receipt Date: 20091230
  Transmission Date: 20100710
  Serious: Yes (Other)
  Sender: FDA-Public Use
  Company Number: PHEH2009US18540

PATIENT
  Sex: Female

DRUGS (4)
  1. GLEEVEC [Suspect]
     Dosage: 400 MG, UNK
  2. PREMARIN [Concomitant]
  3. VITAMIN C [Concomitant]
  4. IRON [Concomitant]

REACTIONS (4)
  - CHOLECYSTECTOMY [None]
  - DIARRHOEA [None]
  - MALAISE [None]
  - VOMITING [None]
